FAERS Safety Report 5710154-2 (Version None)
Quarter: 2008Q2

REPORT INFORMATION
  Report Type: 
  Country: None (occurrence: None)
  Receive Date: 20080418
  Receipt Date: 20071214
  Transmission Date: 20081010
  Serious: No
  Sender: FDA-Public Use
  Company Number: US-ASTRAZENECA-2007UW28481

PATIENT
  Age: 62 Year
  Sex: Female
  Weight: 79.4 kg

DRUGS (6)
  1. TOPROL-XL [Suspect]
     Route: 048
  2. HYDROCHLOROTHIAZIDE [Concomitant]
  3. VITAMIN B COMPLEX CAP [Concomitant]
  4. FLAXSEED OIL [Concomitant]
  5. ASCORBIC ACID [Concomitant]
  6. ENZYMES [Concomitant]
     Indication: DYSPEPSIA

REACTIONS (1)
  - ORGASMIC SENSATION DECREASED [None]
